FAERS Safety Report 9170353 (Version 3)
Quarter: 2013Q3

REPORT INFORMATION
  Report Type: Spontaneous
  Country: US (occurrence: US)
  Receive Date: 20130319
  Receipt Date: 20130816
  Transmission Date: 20140515
  Serious: Yes (Hospitalization)
  Sender: FDA-Public Use
  Company Number: US-BAYER-2013-032049

PATIENT
  Age: 21 Year
  Sex: Female
  Weight: 113.38 kg

DRUGS (13)
  1. YAZ [Suspect]
     Indication: ACNE
     Dosage: UNK
     Dates: start: 2004, end: 2007
  2. YASMIN [Suspect]
     Indication: ACNE
     Dosage: UNK
     Dates: start: 2004, end: 2007
  3. AMOXICILLIN [Concomitant]
     Dosage: 875 MG, UNK
  4. ZITHROMAX [Concomitant]
     Dosage: 250 MG, UNK
  5. HYDROCODONE W/APAP [Concomitant]
     Dosage: 10MG/650MG
  6. MECLIZINE [Concomitant]
     Dosage: 25 MG, UNK
  7. OXYCODONE/APAP [Concomitant]
     Dosage: 5MG/325MG
  8. TOPROL [Concomitant]
  9. FOLIC ACID [Concomitant]
  10. CIPRO [Concomitant]
  11. IRON SULFATE [Concomitant]
  12. ALBUTEROL [Concomitant]
     Route: 045
  13. TYLENOL [Concomitant]

REACTIONS (6)
  - Deep vein thrombosis [None]
  - Deep vein thrombosis [Recovered/Resolved]
  - Pulmonary embolism [None]
  - Injury [None]
  - Pain [None]
  - Pain [None]
